FAERS Safety Report 11092141 (Version 13)
Quarter: 2016Q4

REPORT INFORMATION
  Report Type: Report from Study
  Country: CA (occurrence: CA)
  Receive Date: 20150505
  Receipt Date: 20161214
  Transmission Date: 20170206
  Serious: Yes (Other)
  Sender: FDA-Public Use
  Company Number: PHHY2014CA027153

PATIENT
  Age: 41 Year
  Sex: Female

DRUGS (8)
  1. SANDOSTATIN LAR DEPOT [Suspect]
     Active Substance: OCTREOTIDE ACETATE
     Dosage: 30 MG, QMO (ONCE A MONTH)
     Route: 030
     Dates: start: 20160405
  2. SANDOSTATIN [Suspect]
     Active Substance: OCTREOTIDE ACETATE
     Indication: CARCINOID TUMOUR
     Dosage: 0.75 ML, TID, FOR 3 WEEKS
     Route: 058
  3. SANDOSTATIN LAR DEPOT [Suspect]
     Active Substance: OCTREOTIDE ACETATE
     Dosage: 40 MG, QMO (EVERY 4 WEEKS)
     Route: 030
     Dates: start: 20150430
  4. EPIPEN [Concomitant]
     Active Substance: EPINEPHRINE
     Indication: FOOD ALLERGY
     Route: 065
  5. BENADRYL [Concomitant]
     Active Substance: DIPHENHYDRAMINE HYDROCHLORIDE
     Indication: FOOD ALLERGY
     Route: 065
  6. PREDNISONE. [Concomitant]
     Active Substance: PREDNISONE
     Indication: PRODUCT USED FOR UNKNOWN INDICATION
     Dosage: 10 MG, QD
     Route: 065
     Dates: start: 2016
  7. PREGABALIN. [Concomitant]
     Active Substance: PREGABALIN
     Indication: PAIN
     Dosage: UNK
     Route: 065
  8. SANDOSTATIN LAR DEPOT [Suspect]
     Active Substance: OCTREOTIDE ACETATE
     Indication: METASTATIC CARCINOID TUMOUR
     Dosage: 20 MG, QMO (EVERY 4 WEEKS)
     Route: 030
     Dates: start: 20140120, end: 20150319

REACTIONS (31)
  - Gastrointestinal oedema [Unknown]
  - Hypoaesthesia [Unknown]
  - Erythema [Unknown]
  - Breast mass [Unknown]
  - Carcinoid crisis [Unknown]
  - Blood pressure diastolic increased [Unknown]
  - Oropharyngeal pain [Unknown]
  - Abdominal discomfort [Unknown]
  - Blood pressure diastolic decreased [Unknown]
  - Swelling face [Unknown]
  - Malaise [Unknown]
  - Alopecia [Unknown]
  - Tracheal oedema [Unknown]
  - Oesophageal oedema [Unknown]
  - Blood pressure systolic increased [Unknown]
  - Abdominal distension [Unknown]
  - Dyspnoea [Recovering/Resolving]
  - Inappropriate schedule of drug administration [Unknown]
  - Flushing [Recovering/Resolving]
  - Speech disorder [Recovering/Resolving]
  - Fatigue [Unknown]
  - Lip swelling [Unknown]
  - Pulmonary congestion [Unknown]
  - Pulmonary mass [Unknown]
  - Ovarian mass [Unknown]
  - Intestinal mass [Unknown]
  - Weight increased [Unknown]
  - Dysphagia [Recovering/Resolving]
  - Visual impairment [Unknown]
  - Body temperature decreased [Unknown]
  - Peripheral swelling [Not Recovered/Not Resolved]

NARRATIVE: CASE EVENT DATE: 20140228
